FAERS Safety Report 23084724 (Version 1)
Quarter: 2023Q4

REPORT INFORMATION
  Report Type: Spontaneous
  Country: US (occurrence: None)
  Receive Date: 20231019
  Receipt Date: 20231019
  Transmission Date: 20240110
  Serious: Yes (Hospitalization)
  Sender: FDA-Public Use
  Company Number: None

PATIENT
  Age: 58 Year
  Sex: Male

DRUGS (2)
  1. ALBUTEROL [Suspect]
     Active Substance: ALBUTEROL
     Dates: start: 20220128
  2. ALBUTEROL [Suspect]
     Active Substance: ALBUTEROL
     Dates: start: 20230210

REACTIONS (4)
  - Tachycardia [None]
  - Herpes zoster [None]
  - Dizziness [None]
  - Dyspnoea exertional [None]

NARRATIVE: CASE EVENT DATE: 20230214
